FAERS Safety Report 4881439-7 (Version None)
Quarter: 2005Q4

REPORT INFORMATION
  Report Type: 
  Country: None (occurrence: None)
  Receive Date: 20051209
  Receipt Date: 20050613
  Transmission Date: 20060501
  Serious: Yes (Other)
  Sender: FDA-Public Use
  Company Number: USA-2005-0020585

PATIENT
  Age: 22 Year
  Sex: Male

DRUGS (3)
  1. OXYCONTIN TALBETS (OXYCODONE HYDROCHLORIDE) [Suspect]
     Route: 065
  2. MORPHINE SULFATE [Suspect]
     Route: 065
  3. RITALIN [Suspect]
     Route: 065

REACTIONS (1)
  - POLYSUBSTANCE ABUSE [None]
